FAERS Safety Report 8800062 (Version 1)
Quarter: 2012Q4

REPORT INFORMATION
  Report Type: 
  Country: PR (occurrence: PR)
  Receive Date: 20120921
  Receipt Date: 20120921
  Transmission Date: 20130627
  Serious: Yes (Hospitalization, Other)
  Sender: FDA-Public Use
  Company Number: PR-ABBOTT-12P-131-0975701-00

PATIENT
  Sex: Female
  Weight: 50.39 kg

DRUGS (4)
  1. HUMIRA [Suspect]
     Route: 058
     Dates: end: 201207
  2. ASACOL [Concomitant]
     Indication: COLITIS ULCERATIVE
     Dosage: 4 tablets three times daily
     Route: 048
     Dates: end: 201208
  3. PREDNISONE [Concomitant]
     Indication: COLITIS ULCERATIVE
     Route: 048
     Dates: end: 201206
  4. UNKNOWN MEDICATION [Concomitant]
     Indication: RHEUMATOID ARTHRITIS
     Route: 048
     Dates: end: 201208

REACTIONS (4)
  - Colitis ulcerative [Unknown]
  - Urticaria [Recovered/Resolved]
  - Rheumatoid arthritis [Recovered/Resolved]
  - Diarrhoea [Recovered/Resolved]
